FAERS Safety Report 6264596-X (Version None)
Quarter: 2009Q3

REPORT INFORMATION
  Report Type: 
  Country: None (occurrence: None)
  Receive Date: 20090710
  Receipt Date: 20090707
  Transmission Date: 20100115
  Serious: Yes (Death, Congenital Anomaly, Other)
  Sender: FDA-Public Use
  Company Number: PHHY2008FR22075

PATIENT

DRUGS (2)
  1. TASIGNA [Suspect]
     Dosage: MATERNAL DOSE 400 MG QD
     Route: 064
     Dates: start: 20080521, end: 20080710
  2. ROFERON-A [Suspect]
     Route: 064

REACTIONS (4)
  - ABORTION INDUCED [None]
  - DRUG EXPOSURE DURING PREGNANCY [None]
  - EXOMPHALOS [None]
  - FOETAL MALFORMATION [None]
